FAERS Safety Report 10029772 (Version 1)
Quarter: 2014Q1

REPORT INFORMATION
  Report Type: Spontaneous
  Country: US (occurrence: None)
  Receive Date: 20140321
  Receipt Date: 20140321
  Transmission Date: 20141002
  Serious: Yes (Hospitalization)
  Sender: FDA-Public Use
  Company Number: None

PATIENT
  Age: 19 Year
  Sex: Female
  Weight: 105 kg

DRUGS (2)
  1. LOW-OGESTREL [Suspect]
     Indication: POLYCYSTIC OVARIES
     Dosage: 1 PILL QD ORAL
     Route: 048
  2. LOW-OGESTREL [Suspect]
     Indication: CONTRACEPTION
     Dosage: 1 PILL QD ORAL
     Route: 048

REACTIONS (2)
  - Transverse sinus thrombosis [None]
  - Intracranial venous sinus thrombosis [None]
